FAERS Safety Report 14270767 (Version 3)
Quarter: 2019Q1

REPORT INFORMATION
  Report Type: Spontaneous
  Country: US (occurrence: US)
  Receive Date: 20171211
  Receipt Date: 20190117
  Transmission Date: 20190417
  Serious: Yes (Other)
  Sender: FDA-Public Use
  Company Number: US-OTSUKA-2017_025014

PATIENT
  Age: 58 Year
  Sex: Male

DRUGS (5)
  1. ABILIFY [Suspect]
     Active Substance: ARIPIPRAZOLE
     Indication: SOCIAL ANXIETY DISORDER
     Dosage: 5 MG, UNK
     Route: 065
     Dates: end: 201504
  2. ABILIFY [Suspect]
     Active Substance: ARIPIPRAZOLE
     Indication: POST-TRAUMATIC STRESS DISORDER
  3. ABILIFY [Suspect]
     Active Substance: ARIPIPRAZOLE
     Indication: PSYCHOTIC DISORDER
     Dosage: UNK
     Route: 065
  4. ABILIFY [Suspect]
     Active Substance: ARIPIPRAZOLE
     Indication: MAJOR DEPRESSION
     Dosage: 2 MG, UNK
     Route: 065
     Dates: start: 201204
  5. ARIPIPRAZOLE. [Concomitant]
     Active Substance: ARIPIPRAZOLE
     Indication: PRODUCT USED FOR UNKNOWN INDICATION
     Dosage: UNK
     Route: 065
     Dates: start: 20150528, end: 20161123

REACTIONS (11)
  - Compulsive shopping [Unknown]
  - Condition aggravated [Recovering/Resolving]
  - Brain injury [Unknown]
  - Trichotillomania [Unknown]
  - Obsessive-compulsive disorder [Unknown]
  - Injury [Unknown]
  - Skin abrasion [Unknown]
  - Emotional distress [Unknown]
  - Eating disorder [Unknown]
  - Loss of employment [Unknown]
  - Gambling disorder [Recovering/Resolving]

NARRATIVE: CASE EVENT DATE: 2012
